FAERS Safety Report 4602441-6 (Version None)
Quarter: 2005Q1

REPORT INFORMATION
  Report Type: 
  Country: None (occurrence: None)
  Receive Date: 20050307
  Receipt Date: 20050222
  Transmission Date: 20050727
  Serious: Yes (Hospitalization, Other)
  Sender: FDA-Public Use
  Company Number: 2004-117772-NL

PATIENT
  Age: 31 Year
  Sex: Female
  Weight: 72.3 kg

DRUGS (4)
  1. NUVARING [Suspect]
     Dosage: VAGINAL
     Route: 067
     Dates: start: 20030101
  2. PRENATAL VITAMINS [Concomitant]
  3. PROMETHRYN [Concomitant]
  4. ALDOMET [Concomitant]

REACTIONS (3)
  - DRUG EXPOSURE DURING PREGNANCY [None]
  - PREGNANCY INDUCED HYPERTENSION [None]
  - PREGNANCY WITH CONTRACEPTIVE DEVICE [None]
